FAERS Safety Report 13280461 (Version 1)
Quarter: 2017Q1

REPORT INFORMATION
  Report Type: Spontaneous
  Country: US (occurrence: US)
  Receive Date: 20170228
  Receipt Date: 20170228
  Transmission Date: 20170428
  Serious: Yes (Life-Threatening, Hospitalization, Disabling, Other)
  Sender: FDA-Public Use
  Company Number: None

PATIENT
  Age: 45 Year
  Sex: Female
  Weight: 88.65 kg

DRUGS (1)
  1. HYDRALAZINE [Suspect]
     Active Substance: HYDRALAZINE HYDROCHLORIDE
     Indication: HYPERTENSION
     Dosage: ?          QUANTITY:1 TABLET(S);?
     Route: 048

REACTIONS (16)
  - Hypersensitivity [None]
  - Coma [None]
  - Depression [None]
  - Malaise [None]
  - Pancreatitis [None]
  - Liver injury [None]
  - Vasculitis [None]
  - Infection [None]
  - Fall [None]
  - Pneumonia [None]
  - Renal failure [None]
  - Osteomyelitis [None]
  - Peripheral swelling [None]
  - Decreased appetite [None]
  - Circulatory collapse [None]
  - Finger amputation [None]

NARRATIVE: CASE EVENT DATE: 20160928
